FAERS Safety Report 6344442-6 (Version None)
Quarter: 2009Q3

REPORT INFORMATION
  Report Type: 
  Country: None (occurrence: None)
  Receive Date: 20090908
  Receipt Date: 20090904
  Transmission Date: 20100115
  Serious: Yes (Death, Hospitalization, Other)
  Sender: FDA-Public Use
  Company Number: PHHO2009DE10210

PATIENT
  Sex: Male
  Weight: 85 kg

DRUGS (8)
  1. RAD 666 RAD+TAB [Suspect]
     Indication: METASTATIC RENAL CELL CARCINOMA
     Dosage: 10 MG/DAY
     Route: 048
     Dates: start: 20090707, end: 20090816
  2. ASPIRIN [Concomitant]
  3. CARDOPAX [Concomitant]
  4. SEGURIL [Concomitant]
  5. PANTOZOL [Concomitant]
  6. HYDROCORTISONE [Concomitant]
  7. ASTOMIN [Concomitant]
  8. ALLOPURINOL [Concomitant]

REACTIONS (2)
  - ANAEMIA [None]
  - GENERAL PHYSICAL HEALTH DETERIORATION [None]
